FAERS Safety Report 24054705 (Version 1)
Quarter: 2024Q3

REPORT INFORMATION
  Report Type: Spontaneous
  Country: RO (occurrence: RO)
  Receive Date: 20240705
  Receipt Date: 20240705
  Transmission Date: 20241017
  Serious: Yes (Life-Threatening, Hospitalization)
  Sender: Steriscience PTE
  Company Number: RO-STERISCIENCE B.V.-2024-ST-000951

PATIENT
  Age: 53 Year
  Sex: Male

DRUGS (5)
  1. METOPROLOL [Suspect]
     Active Substance: METOPROLOL
     Indication: Supraventricular tachycardia
     Dosage: 10 MILLIGRAM
     Route: 042
  2. ADENOSINE [Suspect]
     Active Substance: ADENOSINE
     Indication: Supraventricular tachycardia
     Dosage: 6 MILLIGRAM
     Route: 065
  3. ADENOSINE [Suspect]
     Active Substance: ADENOSINE
     Dosage: 12 MILLIGRAM
     Route: 065
  4. ADENOSINE [Suspect]
     Active Substance: ADENOSINE
     Dosage: 18 MILLIGRAM
     Route: 065
  5. OXYGEN [Concomitant]
     Active Substance: OXYGEN
     Indication: Supplementation therapy
     Dosage: UNK
     Route: 065

REACTIONS (1)
  - Drug ineffective for unapproved indication [Unknown]
